FAERS Safety Report 14827034 (Version 5)
Quarter: 2018Q3

REPORT INFORMATION
  Report Type: Spontaneous
  Country: US (occurrence: US)
  Receive Date: 20180430
  Receipt Date: 20180807
  Transmission Date: 20181010
  Serious: Yes (Other)
  Sender: FDA-Public Use
  Company Number: US-PFIZER INC-2018174644

PATIENT
  Age: 56 Year
  Sex: Male

DRUGS (7)
  1. KETOCONAZOLE. [Suspect]
     Active Substance: KETOCONAZOLE
     Indication: EAR INFECTION FUNGAL
  2. KETOCONAZOLE. [Suspect]
     Active Substance: KETOCONAZOLE
     Indication: PENILE INFECTION
  3. KETOCONAZOLE. [Suspect]
     Active Substance: KETOCONAZOLE
     Indication: ANTIFUNGAL TREATMENT
     Dosage: 200 MG, 2X/DAY
     Route: 048
  4. FLUCONAZOLE. [Suspect]
     Active Substance: FLUCONAZOLE
     Indication: PENILE INFECTION
  5. FLUCONAZOLE. [Suspect]
     Active Substance: FLUCONAZOLE
     Indication: ANTIFUNGAL TREATMENT
     Dosage: UNK, 2X/DAY
  6. NALTREXONE [Concomitant]
     Active Substance: NALTREXONE
     Indication: AUTOIMMUNE DISORDER
     Dosage: 4.5 MG, 1X/DAY
  7. FLUCONAZOLE. [Suspect]
     Active Substance: FLUCONAZOLE
     Indication: EAR INFECTION FUNGAL

REACTIONS (14)
  - Dehydration [Recovering/Resolving]
  - Nausea [Recovering/Resolving]
  - Flushing [Recovering/Resolving]
  - Tinnitus [Recovering/Resolving]
  - Tremor [Recovering/Resolving]
  - Paraesthesia [Recovering/Resolving]
  - Eyelid irritation [Recovering/Resolving]
  - Dyspnoea [Recovering/Resolving]
  - Angioedema [Recovering/Resolving]
  - Hypotension [Recovering/Resolving]
  - Asthenia [Recovering/Resolving]
  - Headache [Recovering/Resolving]
  - Alcohol intolerance [Recovering/Resolving]
  - Burning sensation [Recovering/Resolving]
